FAERS Safety Report 7138635-8 (Version None)
Quarter: 2010Q4

REPORT INFORMATION
  Report Type: 
  Country: None (occurrence: None)
  Receive Date: 20101122
  Receipt Date: 20101112
  Transmission Date: 20110411
  Serious: Yes (Disabling, Other)
  Sender: FDA-Public Use
  Company Number: TRP_07386_2010

PATIENT
  Sex: Female

DRUGS (5)
  1. RIBASPHERE [Suspect]
     Indication: HEPATITIS C
     Dosage: (ORAL)
     Route: 048
     Dates: start: 20100708
  2. PEG-INTRON [Suspect]
     Indication: HEPATITIS C
     Dosage: (120 MCG SUBCUTANEOUS), (120 MCG; SUBCUTANEOUS), (120 MCG: SUBCUTANEOUS), (120 MCG SUBCUTANEOUS)
     Route: 058
     Dates: start: 20100708
  3. PEG-INTRON [Suspect]
     Indication: HEPATITIS C
     Dosage: (120 MCG SUBCUTANEOUS), (120 MCG; SUBCUTANEOUS), (120 MCG: SUBCUTANEOUS), (120 MCG SUBCUTANEOUS)
     Route: 058
     Dates: start: 20101105
  4. PEG-INTRON [Suspect]
  5. PEG-INTRON [Suspect]

REACTIONS (5)
  - ALOPECIA [None]
  - INJURY ASSOCIATED WITH DEVICE [None]
  - PRODUCT QUALITY ISSUE [None]
  - SCRATCH [None]
  - WRONG TECHNIQUE IN DRUG USAGE PROCESS [None]
